FAERS Safety Report 8183400-6 (Version None)
Quarter: 2012Q1

REPORT INFORMATION
  Report Type: 
  Country: None (occurrence: None)
  Receive Date: 20120130
  Receipt Date: 20110919
  Transmission Date: 20120608
  Serious: Yes (Hospitalization)
  Sender: FDA-Public Use
  Company Number: 041617

PATIENT
  Sex: Female
  Weight: 74.8 kg

DRUGS (8)
  1. AMBIEN [Concomitant]
  2. KEPPRA [Suspect]
     Indication: CONVULSION
     Dosage: (3500 MG, DAILY DOSE: 3500 MG, 1500 MG EVERY MORNING - 2000 MG EVERY NIGHT ORAL)
     Route: 048
     Dates: start: 20101001
  3. ZYRTEC [Concomitant]
  4. LYRICA [Concomitant]
  5. KLONOPIN [Concomitant]
  6. ZOLOFT [Concomitant]
  7. ZANTAC /00550802/ [Concomitant]
  8. VARENICLINE [Concomitant]

REACTIONS (1)
  - CONVULSION [None]
